FAERS Safety Report 18756096 (Version 1)
Quarter: 2021Q1

REPORT INFORMATION
  Report Type: Spontaneous
  Country: US (occurrence: US)
  Receive Date: 20210119
  Receipt Date: 20210119
  Transmission Date: 20210419
  Serious: Yes (Death)
  Sender: FDA-Public Use
  Company Number: US-ENDO PHARMACEUTICALS INC-2021-000259

PATIENT
  Age: 17 Year
  Sex: Female

DRUGS (1)
  1. COLCHICINE. [Suspect]
     Active Substance: COLCHICINE
     Indication: PAIN
     Dosage: 0.6 MG, UNK 10?45 TABLETS AT ONCE
     Route: 048

REACTIONS (6)
  - Toxicity to various agents [Fatal]
  - Back pain [Unknown]
  - Completed suicide [Fatal]
  - Overdose [Fatal]
  - Death [Fatal]
  - Off label use [Unknown]

NARRATIVE: CASE EVENT DATE: 2019
